FAERS Safety Report 23839663 (Version 2)
Quarter: 2024Q2

REPORT INFORMATION
  Report Type: Spontaneous
  Country: CN (occurrence: CN)
  Receive Date: 20240510
  Receipt Date: 20240514
  Transmission Date: 20240716
  Serious: Yes (Other)
  Sender: FDA-Public Use
  Company Number: CN-TOLMAR, INC.-24CN049059

PATIENT
  Age: 65 Year
  Sex: Male

DRUGS (7)
  1. LEUPROLIDE ACETATE [Suspect]
     Active Substance: ISOPROPYL ALCOHOL\LEUPROLIDE ACETATE
     Indication: Prostate cancer metastatic
     Dosage: 3.75 MILLIGRAM, Q 1 MONTH
     Route: 058
     Dates: start: 202212, end: 202302
  2. LEUPROLIDE ACETATE [Suspect]
     Active Substance: ISOPROPYL ALCOHOL\LEUPROLIDE ACETATE
     Dosage: 11.25 MILLIGRAM, Q 1 MONTH
     Route: 058
     Dates: start: 202303
  3. APALUTAMIDE [Suspect]
     Active Substance: APALUTAMIDE
     Indication: Prostate cancer metastatic
     Dosage: UNK
  4. PIPERACILLIN [Concomitant]
     Active Substance: PIPERACILLIN
     Indication: Organising pneumonia
     Dosage: UNK
  5. SULBACTAM [Concomitant]
     Active Substance: SULBACTAM
     Indication: Organising pneumonia
     Dosage: UNK
  6. SULFANILAMIDE [Concomitant]
     Active Substance: SULFANILAMIDE
     Indication: Organising pneumonia
     Dosage: UNK
  7. TRIMETHOPRIM [Concomitant]
     Active Substance: TRIMETHOPRIM
     Indication: Organising pneumonia
     Dosage: UNK

REACTIONS (1)
  - Organising pneumonia [Recovering/Resolving]
